FAERS Safety Report 5757096-4 (Version None)
Quarter: 2008Q2

REPORT INFORMATION
  Report Type: 
  Country: None (occurrence: None)
  Receive Date: 20080603
  Receipt Date: 20080528
  Transmission Date: 20081010
  Serious: Yes (Hospitalization)
  Sender: FDA-Public Use
  Company Number: B0523263A

PATIENT
  Sex: Male

DRUGS (4)
  1. FLIXONASE [Suspect]
     Route: 045
     Dates: start: 20071001, end: 20080401
  2. FLIXOTIDE [Concomitant]
     Route: 055
  3. DIOVAN [Concomitant]
     Route: 048
  4. PREDNISON [Concomitant]
     Route: 048
     Dates: start: 20080301

REACTIONS (1)
  - EPISTAXIS [None]
